APPROVED DRUG PRODUCT: BUPROPION HYDROCHLORIDE
Active Ingredient: BUPROPION HYDROCHLORIDE
Strength: 100MG
Dosage Form/Route: TABLET, EXTENDED RELEASE;ORAL
Application: A216800 | Product #001 | TE Code: AB1
Applicant: ANNORA PHARMA PRIVATE LTD
Approved: May 31, 2023 | RLD: No | RS: No | Type: RX